FAERS Safety Report 11382671 (Version 2)
Quarter: 2019Q4

REPORT INFORMATION
  Report Type: Spontaneous
  Country: US (occurrence: US)
  Receive Date: 20150814
  Receipt Date: 20191209
  Transmission Date: 20200122
  Serious: Yes (Other)
  Sender: FDA-Public Use
  Company Number: US-PFIZER INC-2015268436

PATIENT
  Age: 56 Year
  Sex: Male
  Weight: 122 kg

DRUGS (2)
  1. PRISTIQ EXTENDED-RELEASE [Suspect]
     Active Substance: DESVENLAFAXINE SUCCINATE
     Indication: ANXIETY
  2. PRISTIQ EXTENDED-RELEASE [Suspect]
     Active Substance: DESVENLAFAXINE SUCCINATE
     Indication: MAJOR DEPRESSION
     Dosage: 100 MG, 3X/DAY (TAKING PRISTIQ 5-6 YEARS AGO MAYBE LONGER.)
     Route: 048

REACTIONS (2)
  - Victim of crime [Unknown]
  - Jaw fracture [Unknown]
